FAERS Safety Report 8364200-0 (Version None)
Quarter: 2012Q2

REPORT INFORMATION
  Report Type: 
  Country: None (occurrence: None)
  Receive Date: 20120516
  Receipt Date: 20120510
  Transmission Date: 20120825
  Serious: Yes (Hospitalization, Congenital Anomaly)
  Sender: FDA-Public Use
  Company Number: US-JNJFOC-20111107265

PATIENT
  Sex: Female

DRUGS (9)
  1. VICODIN [Suspect]
     Indication: FOETAL EXPOSURE DURING PREGNANCY
     Route: 064
  2. MULTI-VITAMINS [Suspect]
     Indication: FOETAL EXPOSURE DURING PREGNANCY
     Route: 064
  3. ACETAMINOPHEN [Suspect]
     Route: 064
  4. TOPAMAX [Suspect]
     Indication: FOETAL EXPOSURE DURING PREGNANCY
     Route: 064
     Dates: start: 20090101
  5. ACETAMINOPHEN [Suspect]
     Indication: FOETAL EXPOSURE DURING PREGNANCY
     Route: 064
  6. LEVOTHYROXINE SODIUM [Suspect]
     Indication: FOETAL EXPOSURE DURING PREGNANCY
     Route: 064
  7. LEXAPRO [Suspect]
     Indication: FOETAL EXPOSURE DURING PREGNANCY
     Route: 064
  8. SUBOXONE [Suspect]
     Indication: FOETAL EXPOSURE DURING PREGNANCY
     Route: 064
  9. OPIOIDS NOS [Suspect]
     Indication: FOETAL EXPOSURE DURING PREGNANCY
     Route: 064

REACTIONS (10)
  - CLEFT PALATE [None]
  - FEEDING DISORDER [None]
  - CONDUCTIVE DEAFNESS [None]
  - EUSTACHIAN TUBE DYSFUNCTION [None]
  - BRADYCARDIA [None]
  - JAUNDICE NEONATAL [None]
  - SPEECH DISORDER [None]
  - INFANTILE APNOEIC ATTACK [None]
  - OTITIS MEDIA CHRONIC [None]
  - WEIGHT DECREASED [None]
